FAERS Safety Report 15335362 (Version 1)
Quarter: 2018Q3

REPORT INFORMATION
  Report Type: Spontaneous
  Country: CH (occurrence: CH)
  Receive Date: 20180830
  Receipt Date: 20180830
  Transmission Date: 20181010
  Serious: Yes (Hospitalization)
  Sender: FDA-Public Use
  Company Number: CH-009507513-1808CHE010410

PATIENT
  Age: 25 Year
  Sex: Male

DRUGS (49)
  1. LASIX [Suspect]
     Active Substance: FUROSEMIDE
     Dosage: 3 MG, QH
     Route: 041
     Dates: start: 20180714
  2. WELLVONE [Suspect]
     Active Substance: ATOVAQUONE
     Dosage: 1500 MG, Q24H
     Route: 048
     Dates: start: 20180702
  3. TAVEGYL [Concomitant]
     Active Substance: CLEMASTINE FUMARATE
     Dosage: AS NECESSARY
  4. NEXIUM [Concomitant]
     Active Substance: ESOMEPRAZOLE MAGNESIUM
     Dosage: UNK
  5. BUDENOFALK [Concomitant]
     Active Substance: BUDESONIDE
     Dosage: UNK
  6. EXCIPIAL [Concomitant]
     Dosage: UNK
  7. TAVEGYL [Concomitant]
     Active Substance: CLEMASTINE FUMARATE
     Dosage: UNK
     Dates: start: 201806
  8. SOLU?CORTEF [Concomitant]
     Active Substance: HYDROCORTISONE SODIUM SUCCINATE
     Dosage: UNK
  9. MAGNESIUM SULFATE. [Concomitant]
     Active Substance: MAGNESIUM SULFATE
     Dosage: UNK
  10. KONAKION [Concomitant]
     Active Substance: PHYTONADIONE
     Dosage: UNK
  11. PERFALGAN [Concomitant]
     Active Substance: ACETAMINOPHEN
     Dosage: AS NECESSARY
  12. TRAMAL [Concomitant]
     Active Substance: TRAMADOL
     Dosage: AS NECESSARY
  13. NOXAFIL [Suspect]
     Active Substance: POSACONAZOLE
     Dosage: 300 MG, Q24H
     Dates: start: 20180716, end: 20180727
  14. AMBISOME [Suspect]
     Active Substance: AMPHOTERICIN B
     Dosage: 500 MG, Q24H
     Route: 041
     Dates: start: 20180719
  15. JADENU [Suspect]
     Active Substance: DEFERASIROX
     Dosage: UNK UNK, QD
     Route: 048
     Dates: start: 20180617, end: 20180702
  16. METRONIDAZOLE. [Suspect]
     Active Substance: METRONIDAZOLE
     Dosage: 500 MG, Q8H
     Dates: start: 20180724, end: 20180731
  17. DEXTROSE. [Concomitant]
     Active Substance: DEXTROSE
     Dosage: UNK
  18. HEPARIN [Concomitant]
     Active Substance: HEPARIN SODIUM
     Dosage: UNK
  19. CERNEVIT [Concomitant]
     Active Substance: VITAMINS
     Dosage: UNK
  20. IPRAMOL (ALBUTEROL SULFATE (+) IPRATROPIUM BROMIDE) [Concomitant]
     Dosage: UNK
  21. PASPERTIN [Concomitant]
     Dosage: AS NECESSARY
  22. REMERON [Suspect]
     Active Substance: MIRTAZAPINE
     Dosage: 15 MG, QD
     Route: 048
     Dates: start: 20180725
  23. NOXAFIL [Suspect]
     Active Substance: POSACONAZOLE
     Dosage: 400 MG, Q24H
     Dates: start: 20180727, end: 20180730
  24. MORPHINE [Concomitant]
     Active Substance: MORPHINE
     Dosage: 2 MG, UNK ; IN TOTAL
     Route: 042
     Dates: start: 20180731
  25. NPLATE [Concomitant]
     Active Substance: ROMIPLOSTIM
     Dosage: UNK
  26. JAKAVI [Concomitant]
     Active Substance: RUXOLITINIB
     Dosage: UNK
  27. NEPHROTRANS [Concomitant]
     Active Substance: SODIUM BICARBONATE
     Dosage: UNK
  28. LACRYVISC [Concomitant]
     Active Substance: CARBOMER
     Dosage: UNK
  29. MYCOSTATINE [Concomitant]
     Active Substance: NYSTATIN
     Dosage: UNK
  30. TESTOGEL [Concomitant]
     Active Substance: TESTOSTERONE
     Dosage: UNK
  31. AMINOMIX 1 [Concomitant]
     Dosage: UNK
     Dates: start: 20180731
  32. SYMBICORT [Concomitant]
     Active Substance: BUDESONIDE\FORMOTEROL FUMARATE DIHYDRATE
     Dosage: UNK
  33. CALCIUM GLUCONATE. [Concomitant]
     Active Substance: CALCIUM GLUCONATE
     Dosage: UNK
     Dates: start: 20180725
  34. KIOVIG [Concomitant]
     Active Substance: HUMAN IMMUNOGLOBULIN G
     Dosage: UNK
     Dates: start: 20180719
  35. GUTRON [Concomitant]
     Active Substance: MIDODRINE
     Dosage: UNK
  36. CANCIDAS [Suspect]
     Active Substance: CASPOFUNGIN ACETATE
     Dosage: 100 MG, Q24H
     Route: 042
     Dates: start: 20180712
  37. TIENAM [Suspect]
     Active Substance: CILASTATIN SODIUM\IMIPENEM
     Dosage: 500 MG, Q6H
     Route: 042
     Dates: start: 20180730
  38. MORPHINE [Concomitant]
     Active Substance: MORPHINE
     Dosage: 1 MG, UNK
     Route: 041
     Dates: start: 20180730
  39. ZITHROMAX [Concomitant]
     Active Substance: AZITHROMYCIN DIHYDRATE
     Dosage: UNK
  40. TEMESTA [Concomitant]
     Dosage: AS NECESSARY
  41. MEROPENEM. [Concomitant]
     Active Substance: MEROPENEM
     Dosage: AS NECESSARY
  42. ACYCLOVIR. [Suspect]
     Active Substance: ACYCLOVIR
     Dosage: 250 MG, Q8H
     Route: 042
     Dates: start: 20180727
  43. ARANESP [Concomitant]
     Active Substance: DARBEPOETIN ALFA
     Dosage: UNK
  44. ADDAVEN [Concomitant]
     Active Substance: ELECTROLYTES NOS\MINERALS
     Dosage: UNK
  45. EUTHYROX [Concomitant]
     Active Substance: LEVOTHYROXINE SODIUM
     Dosage: UNK
  46. SINGULAIR [Concomitant]
     Active Substance: MONTELUKAST SODIUM
     Dosage: UNK
  47. AMIKIN [Concomitant]
     Active Substance: AMIKACIN SULFATE
     Dosage: AS NECESSARY
  48. LAXOBERON [Concomitant]
     Active Substance: SODIUM PICOSULFATE
     Dosage: AS NECESSARY
  49. ZOLPIDEM [Concomitant]
     Active Substance: ZOLPIDEM\ZOLPIDEM TARTRATE
     Dosage: AS NECESSARY

REACTIONS (1)
  - Pancreatitis [Unknown]

NARRATIVE: CASE EVENT DATE: 20180730
